FAERS Safety Report 19740574 (Version 2)
Quarter: 2021Q3

REPORT INFORMATION
  Report Type: Spontaneous
  Country: CL (occurrence: CL)
  Receive Date: 20210825
  Receipt Date: 20210830
  Transmission Date: 20211014
  Serious: Yes (Life-Threatening, Hospitalization)
  Sender: FDA-Public Use
  Company Number: CL-CELLTRION INC.-2021CL011489

PATIENT

DRUGS (6)
  1. MESALAZINE [Concomitant]
     Active Substance: MESALAMINE
     Dosage: 4.5 MG, DAILY
  2. HYDROCORTISONE. [Concomitant]
     Active Substance: HYDROCORTISONE
     Indication: PREMEDICATION
     Dosage: 100 MG, BOLUS
     Route: 042
     Dates: start: 20210811, end: 20210811
  3. AZATHIOPRINE. [Concomitant]
     Active Substance: AZATHIOPRINE
     Dosage: 50 MG, DAILY
  4. REMSIMA [Suspect]
     Active Substance: INFLIXIMAB
     Indication: CROHN^S DISEASE
     Dosage: 300 MG (FIRST INDUCTION DOSE)
     Route: 042
     Dates: start: 20210613
  5. CHLORPHENAMINE MALEATE [Concomitant]
     Active Substance: CHLORPHENIRAMINE MALEATE
     Indication: PREMEDICATION
     Dosage: 10 MG, BOLUS
     Route: 042
     Dates: start: 20210811, end: 20210811
  6. REMSIMA [Suspect]
     Active Substance: INFLIXIMAB
     Dosage: 300 MG Q28DAYS (TREATMENT 300 MG INFLIXIMAB (REMSIMA) IN 250 ML OF PHYSIOLOGICAL SALINE BY CONTINUOU
     Route: 042
     Dates: start: 20210811, end: 20210811

REACTIONS (4)
  - Treatment delayed [Unknown]
  - Overdose [Unknown]
  - Anaphylactic shock [Recovered/Resolved]
  - Off label use [Unknown]

NARRATIVE: CASE EVENT DATE: 20210811
